FAERS Safety Report 15955436 (Version 1)
Quarter: 2019Q1

REPORT INFORMATION
  Report Type: Spontaneous
  Country: US (occurrence: US)
  Receive Date: 20190213
  Receipt Date: 20190213
  Transmission Date: 20190417
  Serious: No
  Sender: FDA-Public Use
  Company Number: US-BAYER-2019-030981

PATIENT
  Sex: Male

DRUGS (5)
  1. AMPYRA [Concomitant]
     Active Substance: DALFAMPRIDINE
  2. ASPIRIN EC [Concomitant]
     Active Substance: ASPIRIN
  3. BACLOFEN. [Concomitant]
     Active Substance: BACLOFEN
  4. BETASERON [Suspect]
     Active Substance: INTERFERON BETA-1B
     Indication: MULTIPLE SCLEROSIS
     Dosage: 1 ML, TIW
     Route: 058
  5. IBUPROFEN. [Concomitant]
     Active Substance: IBUPROFEN

REACTIONS (1)
  - Influenza like illness [Not Recovered/Not Resolved]
